FAERS Safety Report 15879760 (Version 1)
Quarter: 2019Q1

REPORT INFORMATION
  Report Type: Spontaneous
  Country: US (occurrence: US)
  Receive Date: 20190128
  Receipt Date: 20190128
  Transmission Date: 20190417
  Serious: No
  Sender: FDA-Public Use
  Company Number: US-ORPHAN EUROPE-2061816

PATIENT
  Age: 8 Year
  Sex: Male

DRUGS (5)
  1. HYDROXOCOBALAMIN [Concomitant]
     Active Substance: HYDROXOCOBALAMIN
  2. VITAMIN B12 [Concomitant]
     Active Substance: CYANOCOBALAMIN
     Route: 030
  3. FOLINIC ACID [Concomitant]
     Active Substance: LEUCOVORIN
  4. CYSTADANE [Suspect]
     Active Substance: BETAINE
     Indication: VITAMIN B12 DEFICIENCY
  5. LEUCOVORIN. [Concomitant]
     Active Substance: LEUCOVORIN

REACTIONS (3)
  - Overdose [Unknown]
  - Treatment noncompliance [Unknown]
  - Acanthosis [Recovering/Resolving]
